FAERS Safety Report 6759843-1 (Version None)
Quarter: 2010Q2

REPORT INFORMATION
  Report Type: 
  Country: None (occurrence: None)
  Receive Date: 20100608
  Receipt Date: 20100524
  Transmission Date: 20101027
  Serious: Yes (Other)
  Sender: FDA-Public Use
  Company Number: PHHY2010JP34753

PATIENT
  Sex: Male
  Weight: 65 kg

DRUGS (7)
  1. DIOVAN [Suspect]
     Indication: HYPERTENSION
     Dosage: 80 MG, UNK
     Route: 048
     Dates: start: 20081126, end: 20081129
  2. DIOVAN [Suspect]
     Dosage: 20 MG, UNK
     Route: 048
     Dates: start: 20081226
  3. AMLODIPINE [Concomitant]
     Indication: HYPERTENSION
     Dosage: 2.5 MG, UNK
     Route: 048
     Dates: start: 20090108
  4. NU-LOTAN [Concomitant]
     Indication: HYPERTENSION
     Dosage: 25 MG, UNK
     Route: 048
     Dates: start: 20081216, end: 20081225
  5. LIPITOR [Concomitant]
     Dosage: 5 MG, UNK
     Route: 048
     Dates: start: 20081216
  6. HERBESSOR R [Concomitant]
     Dosage: 100 MG, UNK
     Route: 048
     Dates: start: 20090109
  7. MIYA-BM [Concomitant]
     Dosage: 2 DF, UNK
     Route: 048
     Dates: start: 20090115

REACTIONS (9)
  - ANGINA PECTORIS [None]
  - BLOOD PRESSURE DECREASED [None]
  - BLOOD PRESSURE INADEQUATELY CONTROLLED [None]
  - BLOOD PRESSURE INCREASED [None]
  - CONDITION AGGRAVATED [None]
  - ENTEROCOLITIS [None]
  - GASTRITIS [None]
  - HYPERCHOLESTEROLAEMIA [None]
  - STENT PLACEMENT [None]
